FAERS Safety Report 5353990-7 (Version None)
Quarter: 2007Q2

REPORT INFORMATION
  Report Type: 
  Country: None (occurrence: None)
  Receive Date: 20070612
  Receipt Date: 20070607
  Transmission Date: 20071010
  Serious: Yes (Death, Hospitalization)
  Sender: FDA-Public Use
  Company Number: HQWYE539407JUN07

PATIENT
  Sex: Male
  Weight: 67 kg

DRUGS (6)
  1. GEMTUZUMAB OZOGAMICIN [Suspect]
     Indication: ACUTE MYELOID LEUKAEMIA
     Dosage: ACTUAL DOSE GIVEN .051 MG (CUMULATIVE DOSE GIVEN 15.500 MG)
     Route: 042
     Dates: start: 20070302, end: 20070520
  2. TAZOCIN [Concomitant]
     Dosage: UNKNOWN
     Route: 065
     Dates: start: 20070527, end: 20070530
  3. AMIODARONE HCL [Concomitant]
     Dosage: UNKNOWN
     Route: 065
     Dates: start: 20070529, end: 20070530
  4. VFEND [Concomitant]
     Dosage: UNKNOWN
     Route: 065
     Dates: start: 20070529, end: 20070530
  5. ARA-C [Suspect]
     Indication: ACUTE MYELOID LEUKAEMIA
     Dosage: ACTUAL DOSE GIVEN 47.500 MG (CUMULATIVE DOSE GIVEN 480.750 MG)
     Route: 042
     Dates: start: 20070331, end: 20070525
  6. IDARUBICIN HCL [Suspect]
     Indication: ACUTE MYELOID LEUKAEMIA
     Dosage: ACTUAL DOSE GIVEN 13.600 MG (CUMULATIVE DOSE GIVEN 40.800 MG)
     Route: 042
     Dates: start: 20070331, end: 20070505

REACTIONS (4)
  - ATRIAL FIBRILLATION [None]
  - CARDIAC ARREST [None]
  - ENTERITIS [None]
  - FEBRILE NEUTROPENIA [None]
